FAERS Safety Report 6774437-X (Version None)
Quarter: 2010Q2

REPORT INFORMATION
  Report Type: 
  Country: None (occurrence: None)
  Receive Date: 20100617
  Receipt Date: 20100603
  Transmission Date: 20101027
  Serious: Yes (Other)
  Sender: FDA-Public Use
  Company Number: PHHY2010DK37064

PATIENT
  Age: 65 Year
  Sex: Female

DRUGS (3)
  1. RASILEZ [Suspect]
  2. AMLODIPINE [Suspect]
  3. CORODIL [Suspect]

REACTIONS (6)
  - CONFUSIONAL STATE [None]
  - DISTURBANCE IN ATTENTION [None]
  - FATIGUE [None]
  - FEELING ABNORMAL [None]
  - HEADACHE [None]
  - MIGRAINE [None]
